FAERS Safety Report 14421162 (Version 2)
Quarter: 2018Q1

REPORT INFORMATION
  Report Type: Not Available
  Country: US (occurrence: US)
  Receive Date: 20180122
  Receipt Date: 20180206
  Transmission Date: 20180509
  Serious: Yes (Hospitalization)
  Sender: FDA-Public Use
  Company Number: US-NEUROCRINE BIOSCIENCES INC.-2018NBI00037

PATIENT
  Age: 68 Year
  Sex: Female

DRUGS (18)
  1. METFORMIN [Concomitant]
     Active Substance: METFORMIN HYDROCHLORIDE
  2. ABILIFY [Concomitant]
     Active Substance: ARIPIPRAZOLE
  3. CRANBERRY. [Concomitant]
     Active Substance: CRANBERRY
  4. LIPITOR [Concomitant]
     Active Substance: ATORVASTATIN CALCIUM
  5. DEPAKOTE [Concomitant]
     Active Substance: DIVALPROEX SODIUM
  6. INGREZZA [Suspect]
     Active Substance: VALBENAZINE
     Indication: TARDIVE DYSKINESIA
     Route: 048
     Dates: start: 20171215, end: 20171222
  7. VITAMIN B6 [Concomitant]
     Active Substance: PYRIDOXINE HYDROCHLORIDE
  8. MULTI [Concomitant]
  9. MELATONIN [Concomitant]
     Active Substance: MELATONIN
  10. MANGANESE [Concomitant]
     Active Substance: MANGANESE\MANGANESE CHLORIDE
  11. VITAMIN C [Concomitant]
     Active Substance: ASCORBIC ACID
  12. LEVOTHYROXINE. [Concomitant]
     Active Substance: LEVOTHYROXINE
  13. INGREZZA [Suspect]
     Active Substance: VALBENAZINE
     Route: 048
     Dates: start: 20171223, end: 20180118
  14. GABAPENTIN. [Concomitant]
     Active Substance: GABAPENTIN
  15. VITAMIN E COMPLETE [Concomitant]
  16. PRILOSEC [Concomitant]
     Active Substance: OMEPRAZOLE MAGNESIUM
  17. FISH OIL [Concomitant]
     Active Substance: FISH OIL
  18. ASPIRIN. [Concomitant]
     Active Substance: ASPIRIN

REACTIONS (7)
  - Fall [Not Recovered/Not Resolved]
  - Pain [Not Recovered/Not Resolved]
  - Rash erythematous [Unknown]
  - Palpitations [Unknown]
  - Chest pain [Unknown]
  - Fatigue [Not Recovered/Not Resolved]
  - Somnolence [Not Recovered/Not Resolved]

NARRATIVE: CASE EVENT DATE: 201712
